FAERS Safety Report 9924759 (Version 1)
Quarter: 2014Q1

REPORT INFORMATION
  Report Type: Spontaneous
  Country: US (occurrence: US)
  Receive Date: 20140226
  Receipt Date: 20140226
  Transmission Date: 20141002
  Serious: Yes (Other)
  Sender: FDA-Public Use
  Company Number: US-GE HEALTHCARE MEDICAL DIAGNOSTICS-VISP-PR-1402S-0055

PATIENT
  Age: 74 Year
  Sex: Female

DRUGS (2)
  1. VISIPAQUE [Suspect]
     Indication: AORTIC ANEURYSM
     Route: 042
     Dates: start: 20140217, end: 20140217
  2. VISIPAQUE [Suspect]
     Indication: DIAGNOSTIC PROCEDURE

REACTIONS (1)
  - Urticaria [Recovered/Resolved]
